FAERS Safety Report 4470534-2 (Version None)
Quarter: 2004Q4

REPORT INFORMATION
  Report Type: 
  Country: None (occurrence: None)
  Receive Date: 20041005
  Receipt Date: 20040924
  Transmission Date: 20050328
  Serious: Yes (Hospitalization, Other)
  Sender: FDA-Public Use
  Company Number: 200410975BCC

PATIENT
  Age: 47 Year
  Sex: Male
  Weight: 90.7194 kg

DRUGS (7)
  1. ASPIRIN [Suspect]
     Indication: MYOCARDIAL INFARCTION
     Dosage: 325 MG, QD, ORAL
     Route: 048
  2. ASPIRIN [Suspect]
     Indication: PROPHYLAXIS
     Dosage: 325 MG, QD, ORAL
     Route: 048
  3. ASPIRIN [Suspect]
     Dosage: 325 MG, QD, ORAL
     Route: 048
  4. AFRICAN HERBAL [Concomitant]
  5. ANUSOL PLUS SUPPOSITORY [Concomitant]
  6. ONE A DAY ESSENTIAL [Concomitant]
  7. PREVACID [Concomitant]

REACTIONS (4)
  - HAEMOPTYSIS [None]
  - HAEMORRHOIDS [None]
  - HEART RATE INCREASED [None]
  - HIATUS HERNIA [None]
